FAERS Safety Report 6137957-7 (Version None)
Quarter: 2009Q1

REPORT INFORMATION
  Report Type: 
  Country: None (occurrence: None)
  Receive Date: 20090331
  Receipt Date: 20090318
  Transmission Date: 20090719
  Serious: Yes (Hospitalization, Other)
  Sender: FDA-Public Use
  Company Number: US-PFIZER INC-2009179703

PATIENT
  Sex: Female
  Weight: 56.236 kg

DRUGS (3)
  1. LYRICA [Suspect]
     Indication: FIBROMYALGIA
     Dosage: 50 MG, 1X/DAY
     Dates: start: 20070101, end: 20080801
  2. IBUPROFEN [Suspect]
     Indication: BACK INJURY
     Dosage: UNK
     Dates: start: 19910101
  3. OXYCODONE [Concomitant]
     Dosage: UNK

REACTIONS (20)
  - ARTHRALGIA [None]
  - COGNITIVE DISORDER [None]
  - DRUG WITHDRAWAL SYNDROME [None]
  - DYSPHEMIA [None]
  - EATING DISORDER [None]
  - FIBROMYALGIA [None]
  - GASTRIC DISORDER [None]
  - GASTRIC ULCER [None]
  - ILEUS [None]
  - IMPAIRED DRIVING ABILITY [None]
  - IRRITABLE BOWEL SYNDROME [None]
  - MEMORY IMPAIRMENT [None]
  - MENTAL IMPAIRMENT [None]
  - MIGRAINE [None]
  - PAIN [None]
  - PAIN IN EXTREMITY [None]
  - SOMNOLENCE [None]
  - SPEECH DISORDER [None]
  - TREMOR [None]
  - VISUAL IMPAIRMENT [None]
